FAERS Safety Report 4385045-2 (Version None)
Quarter: 2004Q2

REPORT INFORMATION
  Report Type: 
  Country: None (occurrence: None)
  Receive Date: 20040625
  Receipt Date: 20040614
  Transmission Date: 20050107
  Serious: Yes (Other)
  Sender: FDA-Public Use
  Company Number: SE-GLAXOSMITHKLINE-B0335874A

PATIENT
  Age: 48 Year
  Sex: Female

DRUGS (5)
  1. ZINACEF [Suspect]
     Indication: SURGERY
     Route: 065
     Dates: start: 20030522, end: 20030522
  2. VOLUVEN [Suspect]
     Indication: ANAESTHESIA
     Route: 042
     Dates: start: 20030522, end: 20030522
  3. DIPRIVAN [Suspect]
     Route: 042
     Dates: start: 20030522, end: 20030522
  4. ESMERON [Suspect]
     Indication: ANAESTHESIA
     Route: 042
     Dates: start: 20030522, end: 20030522
  5. FENTANYL [Suspect]
     Indication: ANAESTHESIA
     Route: 042
     Dates: start: 20030522, end: 20030522

REACTIONS (4)
  - ANAPHYLACTIC SHOCK [None]
  - BLOOD PRESSURE DECREASED [None]
  - OXYGEN SATURATION DECREASED [None]
  - RASH [None]
